FAERS Safety Report 9778537 (Version 1)
Quarter: 2013Q4

REPORT INFORMATION
  Report Type: Spontaneous
  Country: US (occurrence: US)
  Receive Date: 20131223
  Receipt Date: 20131223
  Transmission Date: 20140711
  Serious: Yes (Other)
  Sender: FDA-Public Use
  Company Number: US-BAYER-2013-153288

PATIENT
  Sex: Male

DRUGS (1)
  1. STIVARGA [Suspect]
     Dosage: 120 MG, QD
     Route: 048
     Dates: start: 20130504, end: 20130708

REACTIONS (1)
  - Therapeutic product ineffective [None]
